FAERS Safety Report 5806241-0 (Version None)
Quarter: 2008Q3

REPORT INFORMATION
  Report Type: 
  Country: None (occurrence: None)
  Receive Date: 20080709
  Receipt Date: 20080709
  Transmission Date: 20090109
  Serious: Yes (Disabling)
  Sender: FDA-Public Use
  Company Number: None

PATIENT
  Sex: Male

DRUGS (3)
  1. MARCAINE HYDROCHLORIDE W/ EPINEPHRINE [Suspect]
     Indication: ARTHROPATHY
     Dosage: 100 CC 2 CC/HR - 48 HR 014
  2. MARCAINE HYDROCHLORIDE W/ EPINEPHRINE [Suspect]
  3. PAINBUSTER PAIN PUMP W/CATHETER [Concomitant]

REACTIONS (1)
  - CYST [None]
